FAERS Safety Report 20086416 (Version 3)
Quarter: 2022Q3

REPORT INFORMATION
  Report Type: Report from Study
  Country: BR (occurrence: BR)
  Receive Date: 20211118
  Receipt Date: 20220930
  Transmission Date: 20221026
  Serious: Yes (Hospitalization, Other)
  Sender: FDA-Public Use
  Company Number: BR-JNJFOC-20211126800

PATIENT
  Age: 17 Year
  Sex: Male
  Weight: 59.8 kg

DRUGS (2)
  1. INFLIXIMAB [Suspect]
     Active Substance: INFLIXIMAB
     Indication: Crohn^s disease
     Dosage: TREATMENT START DATE ACCORDING TO PSP: 2020-NOV-04.
     Route: 041
     Dates: start: 202011, end: 202207
  2. REMICADE [Suspect]
     Active Substance: INFLIXIMAB
     Indication: Crohn^s disease
     Dosage: TREATMENT START DATE ACCORDING TO PSP: 2020-NOV-04.
     Route: 041
     Dates: start: 202011

REACTIONS (3)
  - Pneumonia [Recovering/Resolving]
  - Lymph node tuberculosis [Recovering/Resolving]
  - Histoplasmosis [Recovering/Resolving]

NARRATIVE: CASE EVENT DATE: 20210401
